FAERS Safety Report 23271344 (Version 2)
Quarter: 2023Q4

REPORT INFORMATION
  Report Type: Spontaneous
  Country: US (occurrence: US)
  Receive Date: 20231207
  Receipt Date: 20231219
  Transmission Date: 20240110
  Serious: Yes (Other)
  Sender: FDA-Public Use
  Company Number: US-MYLANLABS-2023M1129350

PATIENT
  Age: 38 Year
  Sex: Female

DRUGS (1)
  1. BUPRENORPHINE [Suspect]
     Active Substance: BUPRENORPHINE
     Indication: Drug use disorder
     Dosage: UNK, MONTHLY (RECEIVED LONG-TERM EXTENDED-RELEASE BUPRENORPHINE)
     Route: 023

REACTIONS (2)
  - Soft tissue necrosis [Recovered/Resolved]
  - Off label use [Unknown]
